FAERS Safety Report 9096180 (Version 1)
Quarter: 2013Q1

REPORT INFORMATION
  Report Type: Spontaneous
  Country: PT (occurrence: PT)
  Receive Date: 20130207
  Receipt Date: 20130207
  Transmission Date: 20140127
  Serious: Yes (Life-Threatening, Disabling)
  Sender: FDA-Public Use
  Company Number: PT-MYLANLABS-2013S1002251

PATIENT
  Age: 29 Year
  Sex: Male
  Weight: 60 kg

DRUGS (4)
  1. SERTRALINA [Suspect]
     Indication: POST-TRAUMATIC STRESS DISORDER
     Dosage: 25 MG DURANTE 7 DIAS; 50 MG DURANTE 3 DIAS.
     Dates: start: 20121009, end: 20121019
  2. CLOXAM /00012002/ [Concomitant]
     Indication: PAIN
     Dates: start: 20121009
  3. SARGENOR [Concomitant]
     Indication: PRODUCT USED FOR UNKNOWN INDICATION
  4. CEBION /00008001/ [Concomitant]
     Indication: PRODUCT USED FOR UNKNOWN INDICATION

REACTIONS (10)
  - Anger [Unknown]
  - Altered state of consciousness [Unknown]
  - Fatigue [Unknown]
  - Insomnia [Unknown]
  - Weight decreased [Unknown]
  - Aggression [Unknown]
  - Suicidal ideation [Unknown]
  - Abnormal behaviour [Unknown]
  - Toxicity to various agents [Unknown]
  - Vomiting [Unknown]
